FAERS Safety Report 6017387-9 (Version None)
Quarter: 2008Q4

REPORT INFORMATION
  Report Type: 
  Country: None (occurrence: None)
  Receive Date: 20081223
  Receipt Date: 20081215
  Transmission Date: 20090506
  Serious: Yes (Other)
  Sender: FDA-Public Use
  Company Number: PHHY2008JP27521

PATIENT
  Age: 71 Year
  Sex: Male

DRUGS (6)
  1. COMTAN [Suspect]
     Indication: PARKINSON'S DISEASE
     Dosage: 1 DF, BID
     Route: 048
     Dates: start: 20081009, end: 20081029
  2. COMTAN [Suspect]
     Indication: PERITONEAL DIALYSIS
  3. UNASYN [Suspect]
     Indication: PNEUMONIA ASPIRATION
     Dosage: 1.5 G, TID
     Route: 042
     Dates: start: 20081015, end: 20081028
  4. FERROMIA [Suspect]
     Dosage: 2 DF, BID
     Route: 048
     Dates: start: 20081009, end: 20081029
  5. METHYLCOBALAMIN [Suspect]
     Dosage: 1 DF, TID
     Route: 048
     Dates: end: 20081029
  6. CARBIDOPA + LEVODOPA [Concomitant]
     Dosage: 22.5
     Route: 048

REACTIONS (4)
  - DRUG ERUPTION [None]
  - ERYTHEMA MULTIFORME [None]
  - PYREXIA [None]
  - RASH [None]
